FAERS Safety Report 17368317 (Version 3)
Quarter: 2020Q2

REPORT INFORMATION
  Report Type: Report from Study
  Country: US (occurrence: US)
  Receive Date: 20200204
  Receipt Date: 20200428
  Transmission Date: 20200713
  Serious: Yes (Death)
  Sender: FDA-Public Use
  Company Number: US-JNJFOC-20200146154

PATIENT
  Age: 57 Year
  Sex: Male

DRUGS (13)
  1. SPRAVATO [Suspect]
     Active Substance: ESKETAMINE
     Indication: DEPRESSION
     Dates: start: 20191023
  2. SPRAVATO [Suspect]
     Active Substance: ESKETAMINE
     Dates: start: 20191230, end: 20191230
  3. SPRAVATO [Suspect]
     Active Substance: ESKETAMINE
     Dates: start: 20200115, end: 20200115
  4. ZANTAC [Concomitant]
     Active Substance: RANITIDINE HYDROCHLORIDE
  5. SPRAVATO [Suspect]
     Active Substance: ESKETAMINE
     Dates: start: 20200103, end: 20200103
  6. SPRAVATO [Suspect]
     Active Substance: ESKETAMINE
     Dates: start: 20200106, end: 20200106
  7. SPRAVATO [Suspect]
     Active Substance: ESKETAMINE
     Dates: start: 20200108, end: 20200108
  8. SPRAVATO [Suspect]
     Active Substance: ESKETAMINE
     Dates: start: 20191211, end: 20191211
  9. SPRAVATO [Suspect]
     Active Substance: ESKETAMINE
     Dates: start: 20200113, end: 20200113
  10. SPRAVATO [Suspect]
     Active Substance: ESKETAMINE
     Dates: start: 20191223, end: 20191223
  11. PRISTIQ EXTENDED-RELEASE [Concomitant]
     Active Substance: DESVENLAFAXINE SUCCINATE
     Indication: DEPRESSION
  12. SPRAVATO [Suspect]
     Active Substance: ESKETAMINE
     Dates: start: 20191218, end: 20191218
  13. AMBIEN [Concomitant]
     Active Substance: ZOLPIDEM TARTRATE
     Indication: INSOMNIA

REACTIONS (1)
  - Death [Fatal]

NARRATIVE: CASE EVENT DATE: 20200118
